FAERS Safety Report 12847249 (Version 1)
Quarter: 2016Q4

REPORT INFORMATION
  Report Type: Spontaneous
  Country: US (occurrence: US)
  Receive Date: 20161014
  Receipt Date: 20161014
  Transmission Date: 20170207
  Serious: No
  Sender: FDA-Public Use
  Company Number: US-GLAXOSMITHKLINE-US2016GSK150403

PATIENT
  Sex: Male

DRUGS (7)
  1. VITAMIN C [Concomitant]
     Active Substance: ASCORBIC ACID
  2. ZINC [Concomitant]
     Active Substance: ZINC\ZINC CHLORIDE
  3. ZETIA [Concomitant]
     Active Substance: EZETIMIBE
  4. FINASTERIDE. [Concomitant]
     Active Substance: FINASTERIDE
  5. FLOMAX [Concomitant]
     Active Substance: TAMSULOSIN HYDROCHLORIDE
  6. LISINOPRIL. [Concomitant]
     Active Substance: LISINOPRIL
  7. ADVAIR DISKUS [Suspect]
     Active Substance: FLUTICASONE PROPIONATE\SALMETEROL XINAFOATE
     Indication: PRODUCT USED FOR UNKNOWN INDICATION
     Dosage: UNK

REACTIONS (4)
  - Dysgeusia [Not Recovered/Not Resolved]
  - Stomatitis [Recovered/Resolved]
  - Oral disorder [Recovered/Resolved]
  - Drug dose omission [Unknown]
